FAERS Safety Report 5010609-2 (Version None)
Quarter: 2006Q2

REPORT INFORMATION
  Report Type: 
  Country: None (occurrence: None)
  Receive Date: 20060524
  Receipt Date: 20060524
  Transmission Date: 20061013
  Serious: Yes (Hospitalization)
  Sender: FDA-Public Use
  Company Number: None

PATIENT
  Age: 58 Year
  Sex: Male
  Weight: 95.709 kg

DRUGS (1)
  1. TYLENOL 8 HOUR   650 MG    MCNEIL [Suspect]
     Indication: MYALGIA
     Dates: start: 20060521, end: 20060521

REACTIONS (4)
  - ATRIAL FIBRILLATION [None]
  - DIZZINESS [None]
  - PRURITUS GENERALISED [None]
  - REACTION TO COLOURING [None]
